FAERS Safety Report 14248797 (Version 36)
Quarter: 2022Q4

REPORT INFORMATION
  Report Type: Report from Study
  Country: FR (occurrence: FR)
  Receive Date: 20171204
  Receipt Date: 20221006
  Transmission Date: 20230112
  Serious: Yes (Hospitalization, Other)
  Sender: FDA-Public Use
  Company Number: PHHY2017FR121490

PATIENT
  Age: 8 Year
  Sex: Male
  Weight: 25 kg

DRUGS (32)
  1. GLIVEC [Suspect]
     Active Substance: IMATINIB MESYLATE
     Indication: Acute lymphocytic leukaemia
     Dosage: 340 MG, QD
     Route: 048
     Dates: start: 20170710, end: 20171119
  2. GLIVEC [Suspect]
     Active Substance: IMATINIB MESYLATE
     Dosage: UNK
     Route: 048
     Dates: start: 20171204
  3. GLIVEC [Suspect]
     Active Substance: IMATINIB MESYLATE
     Dosage: UNK
     Route: 048
     Dates: start: 20180703, end: 20180727
  4. GLIVEC [Suspect]
     Active Substance: IMATINIB MESYLATE
     Dosage: 300 MG, UNK
     Route: 048
     Dates: start: 20180805
  5. ASPARAGINASE [Concomitant]
     Active Substance: ASPARAGINASE
     Indication: Product used for unknown indication
     Dosage: 8360 U, UNK
     Route: 042
     Dates: start: 20170714, end: 20170807
  6. ASPARAGINASE [Concomitant]
     Active Substance: ASPARAGINASE
     Dosage: 9120 UL, UNK
     Route: 042
     Dates: start: 20180710, end: 20180720
  7. VINCRISTINE [Concomitant]
     Active Substance: VINCRISTINE
     Indication: Product used for unknown indication
     Dosage: 1.26 MG, UNK
     Route: 042
     Dates: start: 20170710, end: 20170731
  8. VINCRISTINE [Concomitant]
     Active Substance: VINCRISTINE
     Dosage: 1.32 MG, QD
     Route: 065
     Dates: start: 20171108, end: 20171113
  9. VINCRISTINE [Concomitant]
     Active Substance: VINCRISTINE
     Dosage: 1.37 MG, UNK
     Route: 042
     Dates: start: 20180710, end: 20180724
  10. CERUBIDINE [Concomitant]
     Active Substance: DAUNORUBICIN HYDROCHLORIDE
     Indication: Product used for unknown indication
     Dosage: 25 MG, UNK
     Route: 042
     Dates: start: 20170724, end: 20170731
  11. CYCLOPHOSPHAMIDE [Concomitant]
     Active Substance: CYCLOPHOSPHAMIDE
     Indication: Product used for unknown indication
     Dosage: 852 MG, UNK
     Route: 042
     Dates: start: 20170816, end: 20171013
  12. CYPROHEPTADINE HYDROCHLORIDE [Concomitant]
     Active Substance: CYPROHEPTADINE HYDROCHLORIDE
     Indication: Product used for unknown indication
     Dosage: 64 MG, UNK
     Route: 042
     Dates: start: 20170817, end: 20170820
  13. CYTARABINE [Concomitant]
     Active Substance: CYTARABINE
     Indication: Product used for unknown indication
     Dosage: 30 MG, QD
     Route: 042
     Dates: start: 20171108, end: 20171108
  14. CYTARABINE [Concomitant]
     Active Substance: CYTARABINE
     Dosage: 1760 MG, QD
     Route: 042
     Dates: start: 20171112, end: 20171113
  15. CYTARABINE [Concomitant]
     Active Substance: CYTARABINE
     Dosage: 1710 MG, QID
     Route: 042
     Dates: start: 20180102, end: 20180104
  16. CYTARABINE [Concomitant]
     Active Substance: CYTARABINE
     Dosage: 68 MG, QD
     Route: 042
     Dates: start: 20180814, end: 20180818
  17. METHOTREXATE [Concomitant]
     Active Substance: METHOTREXATE
     Indication: Product used for unknown indication
     Dosage: 440 MG, QD
     Route: 042
     Dates: start: 20171108, end: 20171108
  18. METHOTREXATE [Concomitant]
     Active Substance: METHOTREXATE
     Dosage: UNK
     Route: 042
     Dates: start: 20171204, end: 20171204
  19. METHOTREXATE [Concomitant]
     Active Substance: METHOTREXATE
     Dosage: 25 MG, QD
     Route: 048
     Dates: start: 20180518
  20. CHLORPHENIRAMINE [Concomitant]
     Active Substance: CHLORPHENIRAMINE
     Indication: Product used for unknown indication
     Dosage: 175 MG, QD
     Route: 042
     Dates: start: 20171109, end: 20171111
  21. CHLORPHENIRAMINE [Concomitant]
     Active Substance: CHLORPHENIRAMINE
     Dosage: 9125 MG, UNK
     Route: 042
     Dates: start: 20180813, end: 20180813
  22. ASPARAGINASE [Concomitant]
     Active Substance: ASPARAGINASE
     Indication: Product used for unknown indication
     Dosage: 22000 OT (UL), UNK
     Route: 042
     Dates: start: 20171113, end: 20171113
  23. ASPARAGINASE [Concomitant]
     Active Substance: ASPARAGINASE
     Dosage: 212000 OT (UL), UNK
     Route: 042
     Dates: start: 20180106, end: 20180106
  24. BACTRIM [Concomitant]
     Active Substance: SULFAMETHOXAZOLE\TRIMETHOPRIM
     Indication: Infection prophylaxis
     Dosage: 600 MG, UNK
     Route: 065
     Dates: start: 20170705
  25. PREDNISONE [Concomitant]
     Active Substance: PREDNISONE
     Indication: Product used for unknown indication
     Dosage: 15 MG, UNK
     Route: 065
     Dates: start: 20171108, end: 20171108
  26. VINDESINE [Concomitant]
     Active Substance: VINDESINE
     Indication: Product used for unknown indication
     Dosage: UNK
     Route: 042
     Dates: start: 20171204, end: 20171204
  27. ETOPOSIDE [Concomitant]
     Active Substance: ETOPOSIDE
     Indication: Product used for unknown indication
     Dosage: 86X5
     Route: 042
     Dates: start: 20180104, end: 20180106
  28. CYTARABINE [Concomitant]
     Active Substance: CYTARABINE
     Indication: Product used for unknown indication
     Dosage: 6.4 MG, QD
     Route: 042
     Dates: start: 20170817, end: 20171012
  29. DEXAMETHASONE [Concomitant]
     Active Substance: DEXAMETHASONE
     Indication: Product used for unknown indication
     Dosage: 10 MG, QD
     Route: 048
     Dates: start: 20180601
  30. MERCAPTOPURINE [Concomitant]
     Active Substance: MERCAPTOPURINE
     Indication: Product used for unknown indication
     Dosage: 50 MG, QD
     Route: 048
     Dates: start: 20180518
  31. DOXORUBICIN [Concomitant]
     Active Substance: DOXORUBICIN
     Indication: Product used for unknown indication
     Dosage: 22.8 MG, UNK
     Route: 042
     Dates: start: 20180710, end: 20180724
  32. THIOGUANINE [Concomitant]
     Active Substance: THIOGUANINE
     Indication: Product used for unknown indication
     Dosage: 40 MG, UNK
     Route: 065
     Dates: start: 20180813, end: 20180820

REACTIONS (56)
  - Acute respiratory distress syndrome [Recovered/Resolved]
  - Cough [Recovered/Resolved]
  - Mucosal inflammation [Recovered/Resolved]
  - Febrile bone marrow aplasia [Recovered/Resolved]
  - Febrile bone marrow aplasia [Recovered/Resolved]
  - Febrile bone marrow aplasia [Recovered/Resolved]
  - Febrile bone marrow aplasia [Recovered/Resolved]
  - Pneumonia klebsiella [Recovered/Resolved]
  - Cough [Recovered/Resolved]
  - Herpes zoster [Recovered/Resolved]
  - Sepsis [Recovered/Resolved]
  - Pyrexia [Recovered/Resolved]
  - Febrile bone marrow aplasia [Recovered/Resolved]
  - Pure white cell aplasia [Recovered/Resolved]
  - Bone marrow failure [Recovered/Resolved]
  - Aplasia pure red cell [Unknown]
  - Febrile bone marrow aplasia [Recovered/Resolved]
  - Staphylococcal sepsis [Recovered/Resolved]
  - Sepsis [Recovered/Resolved]
  - Pancytopenia [Recovered/Resolved]
  - Thrombocytopenia [Recovering/Resolving]
  - Hypokalaemia [Recovered/Resolved]
  - Abdominal pain [Unknown]
  - Alanine aminotransferase increased [Unknown]
  - Aspartate aminotransferase increased [Unknown]
  - Pneumonia klebsiella [Recovered/Resolved]
  - Hepatic cytolysis [Not Recovered/Not Resolved]
  - Neutropenia [Unknown]
  - Hepatotoxicity [Recovered/Resolved]
  - Febrile bone marrow aplasia [Recovered/Resolved]
  - Hypoalbuminaemia [Unknown]
  - Hypofibrinogenaemia [Unknown]
  - Pain [Unknown]
  - Mucosal inflammation [Unknown]
  - Glossitis [Unknown]
  - Skin lesion [Unknown]
  - Hypocalcaemia [Unknown]
  - Asthenia [Unknown]
  - Hypophosphataemia [Unknown]
  - Constipation [Unknown]
  - Tremor [Unknown]
  - Stomatitis [Recovered/Resolved]
  - Nausea [Unknown]
  - Anaemia [Unknown]
  - Pruritus [Unknown]
  - Dyspepsia [Unknown]
  - Rhinovirus infection [Unknown]
  - Enterovirus test positive [Unknown]
  - Vomiting [Unknown]
  - Aplasia [Unknown]
  - Platelet count decreased [Recovered/Resolved]
  - Haemoglobin decreased [Recovered/Resolved]
  - Anxiety [Unknown]
  - Gastritis [Unknown]
  - Dermatitis allergic [Unknown]
  - Thermal burn [Unknown]

NARRATIVE: CASE EVENT DATE: 20170710
